FAERS Safety Report 25509926 (Version 1)
Quarter: 2025Q3

REPORT INFORMATION
  Report Type: Spontaneous
  Country: US (occurrence: US)
  Receive Date: 20250703
  Receipt Date: 20250703
  Transmission Date: 20251020
  Serious: No
  Sender: RADIUS PHARM
  Company Number: US-RADIUS HEALTH INC.-2024US001642

PATIENT
  Age: 52 Year
  Sex: Female

DRUGS (1)
  1. TYMLOS [Suspect]
     Active Substance: ABALOPARATIDE
     Indication: Osteoporotic fracture
     Route: 058
     Dates: start: 202402

REACTIONS (8)
  - Hyperaesthesia teeth [Unknown]
  - Headache [Recovering/Resolving]
  - Pain [Recovered/Resolved]
  - Palpitations [Unknown]
  - Dizziness [Unknown]
  - Abdominal distension [Unknown]
  - Dyspepsia [Unknown]
  - Arthralgia [Unknown]

NARRATIVE: CASE EVENT DATE: 20240222
